FAERS Safety Report 14508759 (Version 1)
Quarter: 2018Q1

REPORT INFORMATION
  Report Type: Report from Study
  Country: None (occurrence: US)
  Receive Date: 20180209
  Receipt Date: 20180209
  Transmission Date: 20180509
  Serious: Yes (Other)
  Sender: FDA-Public Use
  Company Number: US-ABBVIE-18K-163-2230740-00

PATIENT
  Age: 53 Year
  Sex: Female
  Weight: 74.46 kg

DRUGS (3)
  1. NADOLOL. [Concomitant]
     Active Substance: NADOLOL
     Indication: VARICES OESOPHAGEAL
  2. LANTUS INSUKINE [Concomitant]
     Indication: DIABETES MELLITUS
  3. HUMIRA [Suspect]
     Active Substance: ADALIMUMAB
     Indication: CROHN^S DISEASE
     Route: 058
     Dates: start: 201707, end: 201712

REACTIONS (5)
  - Wound [Recovering/Resolving]
  - Basal cell carcinoma [Not Recovered/Not Resolved]
  - Vision blurred [Recovering/Resolving]
  - Nausea [Recovered/Resolved]
  - Injection site pain [Recovered/Resolved]

NARRATIVE: CASE EVENT DATE: 201707
